FAERS Safety Report 6372415-6 (Version None)
Quarter: 2009Q3

REPORT INFORMATION
  Report Type: 
  Country: None (occurrence: None)
  Receive Date: 20090924
  Receipt Date: 20090408
  Transmission Date: 20100115
  Serious: No
  Sender: FDA-Public Use
  Company Number: US-ASTRAZENECA-2008UW18225

PATIENT
  Age: 61 Year
  Sex: Female
  Weight: 77.1 kg

DRUGS (19)
  1. SEROQUEL [Suspect]
     Indication: AFFECTIVE DISORDER
     Route: 048
     Dates: start: 20071001, end: 20090322
  2. SEROQUEL [Suspect]
     Indication: SUICIDE ATTEMPT
     Route: 048
     Dates: start: 20071001, end: 20090322
  3. WELLBUTRIN [Concomitant]
  4. ZOCOR [Concomitant]
  5. ATIVAN [Concomitant]
  6. HYDROCHLOROTHIAZIDE [Concomitant]
  7. ZEGRIDE [Concomitant]
  8. MIRALAX [Concomitant]
  9. CALCIUM [Concomitant]
  10. M.V.I. [Concomitant]
  11. VITAMIN D [Concomitant]
  12. VITAMIN E [Concomitant]
  13. ASCORBIC ACID [Concomitant]
  14. ASPIRIN [Concomitant]
  15. FISH OIL [Concomitant]
  16. BENICAR [Concomitant]
  17. MOBIC [Concomitant]
  18. ACIPHEX [Concomitant]
  19. HYDROCODONE [Concomitant]

REACTIONS (5)
  - HOT FLUSH [None]
  - HYPERHIDROSIS [None]
  - INCREASED APPETITE [None]
  - LIVER FUNCTION TEST ABNORMAL [None]
  - WEIGHT INCREASED [None]
